FAERS Safety Report 16581814 (Version 1)
Quarter: 2019Q3

REPORT INFORMATION
  Report Type: Spontaneous
  Country: US (occurrence: US)
  Receive Date: 20190716
  Receipt Date: 20190716
  Transmission Date: 20191004
  Serious: No
  Sender: FDA-Public Use
  Company Number: US-PERRIGO-18US015545

PATIENT
  Sex: Female

DRUGS (2)
  1. MICONAZOLE 1 [Suspect]
     Active Substance: MICONAZOLE NITRATE
     Indication: PRODUCT USED FOR UNKNOWN INDICATION
     Dosage: UNKNOWN, UNKNOWN
     Route: 067
     Dates: start: 201812
  2. MICONAZOLE 1 [Suspect]
     Active Substance: MICONAZOLE NITRATE
     Indication: PRODUCT USED FOR UNKNOWN INDICATION
     Dosage: UNKNOWN, UNKNOWN
     Route: 061
     Dates: start: 201812

REACTIONS (7)
  - Vulvovaginal swelling [Unknown]
  - Vulvovaginal pain [Unknown]
  - Application site haemorrhage [Unknown]
  - Vulvovaginal pruritus [Unknown]
  - Vulvovaginal inflammation [Unknown]
  - Vulvovaginal burning sensation [Unknown]
  - Vaginal erosion [Unknown]

NARRATIVE: CASE EVENT DATE: 201812
